FAERS Safety Report 8976525 (Version 2)
Quarter: 2013Q1

REPORT INFORMATION
  Report Type: Report from Study
  Country: US (occurrence: US)
  Receive Date: 20121220
  Receipt Date: 20130104
  Transmission Date: 20140127
  Serious: Yes (Hospitalization)
  Sender: FDA-Public Use
  Company Number: US-ACTELION-A-NJ2012-75646

PATIENT
  Age: 71 Year
  Sex: Female

DRUGS (11)
  1. TRACLEER [Suspect]
     Indication: PULMONARY ARTERIAL HYPERTENSION
     Dosage: 62.5 MG, UNK
     Route: 048
     Dates: start: 20121123, end: 20121126
  2. ALLOPURINOL [Concomitant]
     Dosage: 100 MG, QD
     Dates: start: 2011
  3. BUDESONIDE [Concomitant]
     Dosage: 0.25 MG, BID
     Dates: start: 2012
  4. BROVANA [Concomitant]
     Dosage: UNK, BID
     Dates: start: 2012
  5. SPIRIVA [Concomitant]
     Dosage: 15 MG, 2 PUFFS DAILY
     Dates: start: 2010
  6. FUROSEMIDE [Concomitant]
     Dosage: 20 MG, UNK
  7. HYDRALAZINE [Concomitant]
     Dosage: 50 MG, BID
  8. VERAPAMIL [Concomitant]
     Dosage: 240 MG, UNK
  9. INDOMETHACIN [Concomitant]
     Dosage: 25 MG, UNK
  10. CALCIUM + VITAMIN D [Concomitant]
     Dosage: 1200 MG, 400 IU DAILY
     Dates: start: 2009
  11. OXYGEN [Concomitant]

REACTIONS (8)
  - Memory impairment [Not Recovered/Not Resolved]
  - Confusional state [Unknown]
  - Dyspnoea [Recovered/Resolved]
  - Blood pressure diastolic decreased [Unknown]
  - Malaise [Unknown]
  - Walking disability [Recovered/Resolved]
  - Hypertension [Unknown]
  - Headache [Recovered/Resolved]
